FAERS Safety Report 15534253 (Version 1)
Quarter: 2018Q4

REPORT INFORMATION
  Report Type: Spontaneous
  Country: US (occurrence: US)
  Receive Date: 20181015
  Receipt Date: 20181015
  Transmission Date: 20190205
  Serious: Yes (Hospitalization)
  Sender: FDA-Public Use
  Company Number: None

PATIENT
  Age: 6 Year
  Sex: Female
  Weight: 15.7 kg

DRUGS (3)
  1. CARBOPLATIN. [Suspect]
     Active Substance: CARBOPLATIN
     Dates: end: 20180912
  2. ETOPOSIDE (VP-16) [Suspect]
     Active Substance: ETOPOSIDE
     Dates: end: 20180916
  3. BLEOMYCIN [Suspect]
     Active Substance: BLEOMYCIN SULFATE
     Dates: end: 20180912

REACTIONS (7)
  - Soft tissue disorder [None]
  - Small intestinal obstruction [None]
  - Vomiting [None]
  - Abdominal pain [None]
  - Bladder disorder [None]
  - Intra-abdominal fluid collection [None]
  - Nausea [None]

NARRATIVE: CASE EVENT DATE: 20181003
